FAERS Safety Report 20425633 (Version 1)
Quarter: 2022Q1

REPORT INFORMATION
  Report Type: Report from Study
  Country: US (occurrence: US)
  Receive Date: 20220204
  Receipt Date: 20220204
  Transmission Date: 20220423
  Serious: No
  Sender: FDA-Public Use
  Company Number: US-EXELIXIS-CABO-21039686

PATIENT
  Sex: Male

DRUGS (2)
  1. CABOMETYX [Suspect]
     Active Substance: CABOZANTINIB S-MALATE
     Indication: Renal cancer
     Dosage: 40 MG, QD
     Dates: start: 20210323
  2. OPDIVO [Concomitant]
     Active Substance: NIVOLUMAB
     Indication: Renal cancer
     Dosage: UNK

REACTIONS (11)
  - Blood thyroid stimulating hormone increased [Not Recovered/Not Resolved]
  - Glossodynia [Recovering/Resolving]
  - Taste disorder [Not Recovered/Not Resolved]
  - Fatigue [Not Recovered/Not Resolved]
  - Decreased appetite [Recovering/Resolving]
  - Nausea [Not Recovered/Not Resolved]
  - Constipation [Recovered/Resolved]
  - Diarrhoea [Recovered/Resolved]
  - Dysgeusia [Unknown]
  - Dyspnoea [Unknown]
  - Cough [Unknown]
